FAERS Safety Report 14135035 (Version 8)
Quarter: 2018Q1

REPORT INFORMATION
  Report Type: Spontaneous
  Country: GB (occurrence: GB)
  Receive Date: 20171027
  Receipt Date: 20180309
  Transmission Date: 20180508
  Serious: Yes (Death, Life-Threatening, Hospitalization, Other)
  Sender: FDA-Public Use
  Company Number: GB-BRISTOL-MYERS SQUIBB COMPANY-BMS-2017-062509

PATIENT
  Age: 58 Year
  Sex: Female
  Weight: 67 kg

DRUGS (3)
  1. OPDIVO [Suspect]
     Active Substance: NIVOLUMAB
     Indication: LUNG NEOPLASM MALIGNANT
     Dosage: 240 MG, Q2WK
     Route: 042
     Dates: start: 20170310, end: 20170407
  2. SULFASALAZINE. [Concomitant]
     Active Substance: SULFASALAZINE
     Indication: POLYARTHRITIS
     Dosage: 1 G, BID
     Route: 048
     Dates: start: 20141008, end: 20170419
  3. PREDNISOLONE. [Concomitant]
     Active Substance: PREDNISOLONE
     Indication: POLYARTHRITIS
     Dosage: 10 MG, QD
     Route: 048
     Dates: start: 20140912, end: 20140912

REACTIONS (8)
  - Pneumonia [Fatal]
  - Autoimmune hepatitis [Fatal]
  - Myasthenic syndrome [Not Recovered/Not Resolved]
  - Muscular weakness [Fatal]
  - Lung neoplasm malignant [Fatal]
  - Dyspnoea [Fatal]
  - Myasthenia gravis [Fatal]
  - Respiratory failure [Fatal]

NARRATIVE: CASE EVENT DATE: 201704
